FAERS Safety Report 9303874 (Version 1)
Quarter: 2013Q1

REPORT INFORMATION
  Report Type: Spontaneous
  Country: US (occurrence: None)
  Receive Date: 20130122
  Receipt Date: 20130122
  Transmission Date: 20140127
  Serious: No
  Sender: FDA-Public Use
  Company Number: 2012-00194

PATIENT
  Age: 53 Year
  Sex: Female
  Weight: 72.58 kg

DRUGS (3)
  1. ZICAM COLD REMEDY ORAL MIST [Suspect]
     Indication: NASOPHARYNGITIS
     Dosage: ORAL SPRAY X1
     Dates: start: 20121108
  2. UNSPECIFIED ZICAM PRODUCT [Suspect]
     Indication: NASOPHARYNGITIS
     Dosage: NASAL APPLICATION X1
     Dates: start: 20121110
  3. TRILLPIX, CRESTOR [Concomitant]

REACTIONS (2)
  - Anosmia [None]
  - Ageusia [None]
